FAERS Safety Report 10406739 (Version 1)
Quarter: 2014Q3

REPORT INFORMATION
  Report Type: Spontaneous
  Country: CA (occurrence: None)
  Receive Date: 20140821
  Receipt Date: 20140821
  Transmission Date: 20150326
  Serious: Yes (Hospitalization)
  Sender: FDA-Public Use
  Company Number: 2014-0004

PATIENT
  Age: 75 Year
  Sex: Female

DRUGS (4)
  1. SERTRALINE [Concomitant]
     Active Substance: SERTRALINE HYDROCHLORIDE
  2. GABAPENTIN. [Suspect]
     Active Substance: GABAPENTIN
     Indication: POST HERPETIC NEURALGIA
     Route: 048
  3. GABAPENTIN. [Suspect]
     Active Substance: GABAPENTIN
     Indication: FIBROMYALGIA
     Route: 048
  4. LORAZEPAM. [Concomitant]
     Active Substance: LORAZEPAM

REACTIONS (12)
  - Abdominal pain [None]
  - Headache [None]
  - Hyperhidrosis [None]
  - Insomnia [None]
  - Renal impairment [None]
  - Blood pressure increased [None]
  - Agitation [None]
  - Chills [None]
  - Decreased appetite [None]
  - Nausea [None]
  - Drug withdrawal syndrome [None]
  - Cold sweat [None]
